FAERS Safety Report 9866922 (Version 6)
Quarter: 2015Q1

REPORT INFORMATION
  Report Type: Spontaneous
  Country: US (occurrence: None)
  Receive Date: 20140131
  Receipt Date: 20150219
  Transmission Date: 20150721
  Serious: Yes (Hospitalization)
  Sender: FDA-Public Use
  Company Number: US-000918

PATIENT
  Age: 22 Year
  Sex: Female

DRUGS (7)
  1. COUMADIN [Concomitant]
     Active Substance: WARFARIN SODIUM
  2. PRILOSEC [Concomitant]
     Active Substance: OMEPRAZOLE MAGNESIUM
  3. NEURONTIN [Concomitant]
     Active Substance: GABAPENTIN
  4. NORCO [Concomitant]
     Active Substance: ACETAMINOPHEN\HYDROCODONE BITARTRATE
  5. FOSAMAX [Concomitant]
     Active Substance: ALENDRONATE SODIUM
  6. GATTEX [Suspect]
     Active Substance: TEDUGLUTIDE\WATER
     Indication: SHORT-BOWEL SYNDROME
     Dosage: (0.39 ML QD, STREN/VOLUM: 0.39ML|FREQ: ONCE A DAY SUBCUTANEOUS)
     Route: 058
     Dates: start: 20131230, end: 201401
  7. SOLUTIONS FOR PARENTERAL NUTRITION [Concomitant]
     Active Substance: AMINO ACIDS\DEXTROSE\ELECTROLYTES NOS

REACTIONS (12)
  - Gastric disorder [None]
  - Intestinal obstruction [None]
  - Faecaloma [None]
  - Haemoptysis [None]
  - Crying [None]
  - Atelectasis [None]
  - Flatulence [None]
  - Headache [None]
  - Muscle spasms [None]
  - Pleural effusion [None]
  - Lung neoplasm [None]
  - Pulmonary embolism [None]

NARRATIVE: CASE EVENT DATE: 201401
